FAERS Safety Report 11858037 (Version 2)
Quarter: 2015Q4

REPORT INFORMATION
  Report Type: Spontaneous
  Country: JP (occurrence: JP)
  Receive Date: 20151222
  Receipt Date: 20151230
  Transmission Date: 20160305
  Serious: Yes (Life-Threatening, Hospitalization)
  Sender: FDA-Public Use
  Company Number: JP-VIFOR (INTERNATIONAL) INC.-VIT-2015-03623

PATIENT
  Age: 82 Year
  Sex: Male

DRUGS (28)
  1. BROMHEXINE HYDROCHLORIDE [Concomitant]
     Active Substance: BROMHEXINE HYDROCHLORIDE
     Route: 055
  2. VOLTAREN [Concomitant]
     Active Substance: DICLOFENAC SODIUM
     Route: 003
  3. LUPRAC [Concomitant]
     Active Substance: TORSEMIDE
     Route: 048
     Dates: start: 2008
  4. XARELTO [Concomitant]
     Active Substance: RIVAROXABAN
     Route: 048
     Dates: start: 20150806
  5. ANTEBATE [Concomitant]
     Active Substance: BETAMETHASONE DIPROPIONATE
     Route: 003
  6. TEPRENONE [Concomitant]
     Active Substance: TEPRENONE
     Route: 048
     Dates: start: 2008
  7. DIART [Concomitant]
     Active Substance: AZOSEMIDE
     Route: 048
     Dates: start: 20150808
  8. LOCOID [Concomitant]
     Active Substance: HYDROCORTISONE BUTYRATE
     Route: 003
  9. EMPYNASE P [Concomitant]
     Active Substance: PROTEIN
     Route: 048
  10. ACETAMINOPHEN. [Concomitant]
     Active Substance: ACETAMINOPHEN
     Route: 048
  11. MIRCERA [Suspect]
     Active Substance: METHOXY POLYETHYLENE GLYCOL-EPOETIN BETA
     Indication: NEPHROGENIC ANAEMIA
     Route: 042
     Dates: start: 20151130
  12. ALOSITOL [Concomitant]
     Active Substance: ALLOPURINOL
     Route: 048
     Dates: start: 2008
  13. BISOPROLOL FUMARATE. [Concomitant]
     Active Substance: BISOPROLOL FUMARATE
     Route: 048
     Dates: start: 20150811
  14. EBASTEL [Concomitant]
     Active Substance: EBASTINE
     Route: 048
  15. PRANLUKAST [Concomitant]
     Active Substance: PRANLUKAST
     Route: 048
  16. MIKELAN LA [Concomitant]
     Active Substance: CARTEOLOL HYDROCHLORIDE
     Route: 047
  17. ALDACTONE A [Concomitant]
     Active Substance: SPIRONOLACTONE
     Route: 048
     Dates: start: 20150808
  18. HALFDIGOXIN [Concomitant]
     Active Substance: DIGOXIN
     Dosage: AMOUNT OF 1, ONCE
     Route: 048
     Dates: start: 20150809
  19. FUCIDIN LEO [Concomitant]
     Active Substance: FUSIDATE SODIUM
     Route: 003
  20. LANSOPRAZOLE OD [Concomitant]
     Active Substance: LANSOPRAZOLE
     Route: 048
     Dates: start: 2008
  21. WARKMIN [Concomitant]
     Active Substance: ALFACALCIDOL
     Dosage: AMOUNT OF 1, ONCE
     Route: 048
     Dates: start: 2008
  22. NERISONA [Concomitant]
     Active Substance: DIFLUCORTOLONE VALERATE
     Route: 003
  23. PETROLATUM SALICYLATE [Concomitant]
     Route: 065
  24. FLUMETHOLON [Concomitant]
     Active Substance: FLUOROMETHOLONE
     Route: 047
  25. VITAMEDIN (JAPAN) [Concomitant]
     Route: 048
     Dates: start: 2008
  26. PREDONINE [Concomitant]
     Active Substance: PREDNISOLONE\PREDNISOLONE ACETATE\PREDNISOLONE SODIUM SUCCINATE
     Indication: EOSINOPHILIC PNEUMONIA
     Route: 048
     Dates: start: 200802
  27. BESOFTEN [Concomitant]
     Active Substance: SODIUM ALGINATE
     Dosage: UNCERTAIN DOSAGE 2 TO 3 TIMES A DAY
     Route: 003
  28. ISOTONIC SODIUM CHLORIDE SOLUTION [Concomitant]
     Active Substance: SODIUM CHLORIDE

REACTIONS (8)
  - Atrial fibrillation [Unknown]
  - Bradycardia [Unknown]
  - Altered state of consciousness [Recovering/Resolving]
  - Ventricular extrasystoles [Unknown]
  - Pulse absent [Unknown]
  - Shock [Recovered/Resolved]
  - Dizziness [Unknown]
  - Pallor [Unknown]

NARRATIVE: CASE EVENT DATE: 20151130
